FAERS Safety Report 23660664 (Version 1)
Quarter: 2024Q1

REPORT INFORMATION
  Report Type: Spontaneous
  Country: FR (occurrence: FR)
  Receive Date: 20240322
  Receipt Date: 20240322
  Transmission Date: 20240410
  Serious: Yes (Hospitalization, Other)
  Sender: FDA-Public Use
  Company Number: None

PATIENT
  Age: 85 Year
  Sex: Female
  Weight: 59 kg

DRUGS (6)
  1. JANUMET [Suspect]
     Active Substance: METFORMIN HYDROCHLORIDE\SITAGLIPTIN PHOSPHATE
     Indication: Type 2 diabetes mellitus
     Dosage: 3 TABS/DAY
     Route: 048
     Dates: end: 20240130
  2. INDAPAMIDE\PERINDOPRIL ERBUMINE [Suspect]
     Active Substance: INDAPAMIDE\PERINDOPRIL ERBUMINE
     Indication: Hypertension
     Dosage: 1-0-0 TAB/D
     Route: 048
     Dates: end: 20240130
  3. AMIODARONE [Suspect]
     Active Substance: AMIODARONE
     Indication: Atrial fibrillation
     Dosage: 1-0-0 TAB/D
     Route: 048
     Dates: end: 20240130
  4. FUROSEMIDE [Suspect]
     Active Substance: FUROSEMIDE
     Indication: Product used for unknown indication
     Dosage: 500 MG: 0.25 -0-0 TABLETS/DAY
     Route: 048
     Dates: start: 20240102, end: 20240130
  5. FUROSEMIDE [Suspect]
     Active Substance: FUROSEMIDE
     Dosage: 40 MG: 1-0-0 TABLETS/DAY
     Route: 048
     Dates: start: 20240102, end: 20240130
  6. DIGOXIN [Suspect]
     Active Substance: DIGOXIN
     Indication: Cardiac failure
     Dosage: 1 CP/D
     Route: 048
     Dates: start: 202311, end: 20240130

REACTIONS (4)
  - Lactic acidosis [Recovered/Resolved]
  - Overdose [Recovered/Resolved]
  - Bradycardia [Recovered/Resolved]
  - Acute kidney injury [Not Recovered/Not Resolved]

NARRATIVE: CASE EVENT DATE: 20240126
